APPROVED DRUG PRODUCT: LIDOCAINE HYDROCHLORIDE
Active Ingredient: LIDOCAINE HYDROCHLORIDE
Strength: 4%
Dosage Form/Route: SOLUTION;TOPICAL
Application: A218182 | Product #001 | TE Code: AT
Applicant: SUN PHARMA CANADA INC
Approved: Dec 7, 2023 | RLD: No | RS: No | Type: RX